FAERS Safety Report 23493188 (Version 1)
Quarter: 2024Q1

REPORT INFORMATION
  Report Type: Spontaneous
  Country: None (occurrence: US)
  Receive Date: 20240207
  Receipt Date: 20240207
  Transmission Date: 20240409
  Serious: No
  Sender: FDA-Public Use
  Company Number: US-Amphastar Pharmaceuticals, Inc.-2152758

PATIENT
  Age: 72 Year
  Sex: Female
  Weight: 70.455 kg

DRUGS (3)
  1. GLUCAGON [Suspect]
     Active Substance: GLUCAGON\GLUCAGON HYDROCHLORIDE\WATER
     Indication: Type 1 diabetes mellitus
  2. DEVICE [Suspect]
     Active Substance: DEVICE
  3. DEVICE [Suspect]
     Active Substance: DEVICE

REACTIONS (1)
  - Product dose omission issue [Recovered/Resolved]

NARRATIVE: CASE EVENT DATE: 20240101
